FAERS Safety Report 5667818-9 (Version None)
Quarter: 2008Q1

REPORT INFORMATION
  Report Type: 
  Country: None (occurrence: None)
  Receive Date: 20080315
  Receipt Date: 20080201
  Transmission Date: 20080703
  Serious: No
  Sender: FDA-Public Use
  Company Number: US-ABBOTT-08P-163-0437082-00

PATIENT
  Sex: Female
  Weight: 71.732 kg

DRUGS (11)
  1. HUMIRA [Suspect]
     Indication: RHEUMATOID ARTHRITIS
     Route: 058
     Dates: start: 20080125, end: 20080125
  2. MORPHINE SULFATE COTIN [Concomitant]
     Indication: PAIN
     Route: 048
  3. PREDNISONE [Concomitant]
     Indication: RHEUMATOID ARTHRITIS
     Route: 048
  4. GABAPENTIN [Concomitant]
     Indication: TREMOR
     Route: 048
  5. INSULIN [Concomitant]
     Indication: DIABETES MELLITUS
     Route: 058
  6. COMBIVENT [Concomitant]
     Indication: WHEEZING
     Dosage: 1-2 PUFFS DAILY
     Route: 055
  7. TRANZENE [Concomitant]
     Indication: PANIC ATTACK
     Route: 048
  8. ZOLPIDEM TARTRATE [Concomitant]
     Indication: INSOMNIA
     Route: 048
  9. ESOMEPRAZOLE MAGNESIUM [Concomitant]
     Indication: GASTROOESOPHAGEAL REFLUX DISEASE
     Dosage: 30 MIN AC
     Route: 048
     Dates: start: 20070501
  10. OMEPRAZOLE [Concomitant]
     Indication: GASTROOESOPHAGEAL REFLUX DISEASE
     Dosage: BEFORE SUPPER
     Route: 048
     Dates: start: 20070501
  11. NORTRIPTYLINE HCL [Concomitant]
     Indication: DEPRESSION
     Dosage: AT BEDTIME
     Route: 048

REACTIONS (2)
  - PYREXIA [None]
  - SINUSITIS [None]
